FAERS Safety Report 12714513 (Version 1)
Quarter: 2016Q3

REPORT INFORMATION
  Report Type: Report from Study
  Country: US (occurrence: US)
  Receive Date: 20160905
  Receipt Date: 20160905
  Transmission Date: 20161109
  Serious: Yes (Death)
  Sender: FDA-Public Use
  Company Number: US-ROCHE-1824978

PATIENT
  Sex: Female

DRUGS (1)
  1. ALTEPLASE [Suspect]
     Active Substance: ALTEPLASE
     Indication: PULMONARY ARTERY THROMBOSIS
     Dosage: STRENGTH: 0.44 MG/KG/H
     Route: 065

REACTIONS (2)
  - Brain death [Fatal]
  - Haemorrhage intracranial [Fatal]
